FAERS Safety Report 21246063 (Version 2)
Quarter: 2022Q4

REPORT INFORMATION
  Report Type: Spontaneous
  Country: US (occurrence: US)
  Receive Date: 20220824
  Receipt Date: 20221011
  Transmission Date: 20230113
  Serious: No
  Sender: FDA-Public Use
  Company Number: US-BIOGEN-2021BI00970034

PATIENT
  Age: 67 Year
  Sex: Female

DRUGS (5)
  1. VUMERITY [Interacting]
     Active Substance: DIROXIMEL FUMARATE
     Indication: Multiple sclerosis
     Route: 050
  2. VUMERITY [Interacting]
     Active Substance: DIROXIMEL FUMARATE
     Route: 050
     Dates: start: 20201228
  3. VUMERITY [Interacting]
     Active Substance: DIROXIMEL FUMARATE
     Route: 050
  4. VUMERITY [Interacting]
     Active Substance: DIROXIMEL FUMARATE
     Route: 050
     Dates: start: 202201, end: 20220727
  5. VUMERITY [Interacting]
     Active Substance: DIROXIMEL FUMARATE
     Route: 050
     Dates: end: 20220822

REACTIONS (6)
  - Off label use [Unknown]
  - Prescribed underdose [Unknown]
  - Poor quality sleep [Not Recovered/Not Resolved]
  - Abdominal discomfort [Not Recovered/Not Resolved]
  - Gastric disorder [Recovered/Resolved]
  - Urticaria [Not Recovered/Not Resolved]

NARRATIVE: CASE EVENT DATE: 20210118
